FAERS Safety Report 8613506-6 (Version None)
Quarter: 2012Q3

REPORT INFORMATION
  Report Type: 
  Country: None (occurrence: None)
  Receive Date: 20120823
  Receipt Date: 20120807
  Transmission Date: 20120928
  Serious: Yes (Other)
  Sender: FDA-Public Use
  Company Number: JP-009507513-2012SP027741

PATIENT

DRUGS (10)
  1. REBETOL [Suspect]
     Indication: HEPATITIS C
     Dosage: 800 MG, QD
     Route: 048
     Dates: start: 20120323, end: 20120329
  2. PEGINTERFERON ALFA-2B [Suspect]
     Indication: HEPATITIS C
     Dosage: 1.5 MICROGRAM PER KILOGRAM, QW
     Route: 058
     Dates: start: 20120323, end: 20120422
  3. PEGINTERFERON ALFA-2B [Suspect]
     Dosage: 1.5 MICROGRAM PER KILOGRAM, QW
     Route: 058
     Dates: start: 20120507
  4. REBETOL [Suspect]
     Dosage: 600 MG, QD
     Route: 048
     Dates: start: 20120330, end: 20120404
  5. TELAPREVIR [Suspect]
     Indication: HEPATITIS C
     Dosage: 2250 MG, QD
     Route: 048
     Dates: start: 20120323, end: 20120412
  6. REBETOL [Suspect]
     Dosage: 400 MG, QD
     Route: 048
     Dates: start: 20120507
  7. REBETOL [Suspect]
     Dosage: 400 MG, QD
     Route: 048
     Dates: start: 20120405, end: 20120422
  8. PRIMPERAN TAB [Concomitant]
     Indication: NAUSEA
     Dosage: 15 MG, UNK
     Route: 048
     Dates: start: 20120409, end: 20120416
  9. DOGMATYL [Concomitant]
     Indication: DECREASED APPETITE
     Dosage: 150 MG, UNK
     Route: 048
     Dates: start: 20120327, end: 20120416
  10. ANTEBATE [Concomitant]
     Dosage: UNK, PRN
     Route: 061
     Dates: start: 20120327, end: 20120423

REACTIONS (3)
  - DECREASED APPETITE [None]
  - ANAEMIA [None]
  - BLOOD CREATININE INCREASED [None]
